FAERS Safety Report 9716179 (Version 1)
Quarter: 2013Q4

REPORT INFORMATION
  Report Type: Spontaneous
  Country: US (occurrence: None)
  Receive Date: 20131126
  Receipt Date: 20131126
  Transmission Date: 20140711
  Serious: Yes (Death)
  Sender: FDA-Public Use
  Company Number: None

PATIENT
  Sex: 0

DRUGS (1)
  1. EMEND [Suspect]
     Indication: PANCREATIC CARCINOMA
     Dosage: 125 MG PRIOR TO CHEMO THEN 80 MG ?DAILY ON DAYS 1-3 ORAL
     Route: 048
     Dates: start: 20131024, end: 20131105

REACTIONS (2)
  - Disease progression [None]
  - Unevaluable event [None]
